FAERS Safety Report 8346585-4 (Version None)
Quarter: 2012Q2

REPORT INFORMATION
  Report Type: 
  Country: None (occurrence: None)
  Receive Date: 20120508
  Receipt Date: 20120508
  Transmission Date: 20120825
  Serious: No
  Sender: FDA-Public Use
  Company Number: None

PATIENT

DRUGS (1)
  1. CAMBIA [Suspect]
     Dates: start: 20120416, end: 20120416

REACTIONS (8)
  - FEELING HOT [None]
  - COUGH [None]
  - ASTHENIA [None]
  - PAIN [None]
  - HYPERHIDROSIS [None]
  - NO THERAPEUTIC RESPONSE [None]
  - PAIN IN EXTREMITY [None]
  - PALPITATIONS [None]
